FAERS Safety Report 7579909-6 (Version None)
Quarter: 2011Q2

REPORT INFORMATION
  Report Type: 
  Country: None (occurrence: None)
  Receive Date: 20110629
  Receipt Date: 20110616
  Transmission Date: 20111010
  Serious: Yes (Other)
  Sender: FDA-Public Use
  Company Number: US-ELI_LILLY_AND_COMPANY-US201101001325

PATIENT
  Sex: Female
  Weight: 55.329 kg

DRUGS (11)
  1. FORTEO [Suspect]
     Dosage: 20 UG, DAILY (1/D)
     Route: 058
  2. FORTEO [Suspect]
     Indication: OSTEOPOROSIS
     Dosage: 20 UG, DAILY (1/D)
     Route: 058
     Dates: start: 20100929
  3. FORTEO [Suspect]
     Dosage: 20 UG, QD
     Route: 058
  4. GABAPENTIN [Concomitant]
  5. TEMAZEPAM [Concomitant]
  6. FORTEO [Suspect]
     Dosage: 20 UG, QD
     Route: 058
  7. FORTEO [Suspect]
     Dosage: 20 UG, QD
     Route: 058
  8. SYNTHROID [Concomitant]
     Dosage: UNK, UNKNOWN
  9. ATENOLOL [Concomitant]
  10. FORTEO [Suspect]
     Dosage: 20 UG, QD
     Route: 058
  11. FORTEO [Suspect]
     Dosage: 20 UG, QD
     Route: 058

REACTIONS (18)
  - SCAB [None]
  - URINARY INCONTINENCE [None]
  - FAECAL INCONTINENCE [None]
  - ARTHRITIS [None]
  - CONCUSSION [None]
  - DYSARTHRIA [None]
  - FALL [None]
  - MUSCULOSKELETAL CHEST PAIN [None]
  - LARYNGITIS [None]
  - HAEMORRHAGE [None]
  - HEADACHE [None]
  - LACERATION [None]
  - NEUROLOGICAL SYMPTOM [None]
  - FEELING ABNORMAL [None]
  - LOSS OF CONSCIOUSNESS [None]
  - CARTILAGE INJURY [None]
  - DIZZINESS [None]
  - MEMORY IMPAIRMENT [None]
